FAERS Safety Report 20060537 (Version 1)
Quarter: 2021Q4

REPORT INFORMATION
  Report Type: Spontaneous
  Country: GR (occurrence: GR)
  Receive Date: 20211112
  Receipt Date: 20211112
  Transmission Date: 20220303
  Serious: Yes (Life-Threatening, Hospitalization, Other)
  Sender: FDA-Public Use
  Company Number: GR-SUN PHARMACEUTICAL INDUSTRIES LTD-2021R1-317314

PATIENT
  Age: 72 Year
  Sex: Female

DRUGS (1)
  1. AMLODIPINE [Suspect]
     Active Substance: AMLODIPINE BESYLATE
     Indication: Product used for unknown indication
     Dosage: UNK (200MG)
     Route: 048

REACTIONS (6)
  - Suicide attempt [Unknown]
  - Shock [Unknown]
  - Overdose [Unknown]
  - Acute pulmonary oedema [Unknown]
  - Vasoplegia syndrome [Recovered/Resolved]
  - Mental impairment [Recovering/Resolving]
